FAERS Safety Report 19511153 (Version 1)
Quarter: 2021Q3

REPORT INFORMATION
  Report Type: Spontaneous
  Country: US (occurrence: US)
  Receive Date: 20210709
  Receipt Date: 20210709
  Transmission Date: 20211014
  Serious: No
  Sender: FDA-Public Use
  Company Number: US-JNJFOC-20210664079

PATIENT
  Sex: Female

DRUGS (1)
  1. WOMENS ROGAINE [Suspect]
     Active Substance: MINOXIDIL
     Indication: ALOPECIA
     Dosage: THE DROPPER MORNING AND EVENING/TWICE
     Route: 061
     Dates: start: 20210621

REACTIONS (1)
  - Application site reaction [Recovering/Resolving]

NARRATIVE: CASE EVENT DATE: 20210621
